FAERS Safety Report 11683700 (Version 2)
Quarter: 2016Q4

REPORT INFORMATION
  Report Type: Spontaneous
  Country: US (occurrence: US)
  Receive Date: 20151029
  Receipt Date: 20161020
  Transmission Date: 20170206
  Serious: No
  Sender: FDA-Public Use
  Company Number: US-ROCHE-1615387

PATIENT
  Sex: Male

DRUGS (1)
  1. PULMOZYME [Suspect]
     Active Substance: DORNASE ALFA
     Indication: PRODUCT USED FOR UNKNOWN INDICATION
     Route: 065

REACTIONS (2)
  - Poor quality drug administered [Unknown]
  - No adverse event [Unknown]
